FAERS Safety Report 6597155-X (Version None)
Quarter: 2010Q1

REPORT INFORMATION
  Report Type: 
  Country: None (occurrence: None)
  Receive Date: 20100212
  Receipt Date: 20100127
  Transmission Date: 20100710
  Serious: Yes (Hospitalization)
  Sender: FDA-Public Use
  Company Number: CERZ-1001149

PATIENT
  Sex: Female

DRUGS (1)
  1. CEREZYME [Suspect]
     Indication: GAUCHER'S DISEASE
     Dosage: 5200 U, Q2W, INTRAVENOUS
     Route: 042
     Dates: start: 19970301

REACTIONS (16)
  - ABSCESS [None]
  - ARTHRITIS [None]
  - ARTHROPATHY [None]
  - BONE DENSITY DECREASED [None]
  - BRONCHITIS [None]
  - BURSITIS [None]
  - COLON CANCER [None]
  - DYSPNOEA [None]
  - EPISTAXIS [None]
  - IMPAIRED HEALING [None]
  - LYMPHOMA [None]
  - POST PROCEDURAL COMPLICATION [None]
  - SINUSITIS [None]
  - TOOTH DISORDER [None]
  - UPPER RESPIRATORY TRACT INFECTION [None]
  - WEIGHT INCREASED [None]
